FAERS Safety Report 5621231-9 (Version None)
Quarter: 2008Q1

REPORT INFORMATION
  Report Type: 
  Country: None (occurrence: None)
  Receive Date: 20080114
  Receipt Date: 20070223
  Transmission Date: 20080703
  Serious: Yes (Hospitalization)
  Sender: FDA-Public Use
  Company Number: A03200701633

PATIENT
  Age: 75 Year
  Sex: Male

DRUGS (4)
  1. PLAVIX [Suspect]
     Indication: STENT PLACEMENT
     Dosage: 75 MG QD-ORAL
     Route: 048
     Dates: start: 20040401, end: 20070218
  2. ACETYLSALICYLIC ACID SRT [Concomitant]
  3. SIMVASTATIN [Concomitant]
  4. ANTI-HYPERTENSIVE NOS [Concomitant]

REACTIONS (1)
  - VASCULAR RUPTURE [None]
